FAERS Safety Report 9057735 (Version 1)
Quarter: 2013Q1

REPORT INFORMATION
  Report Type: Spontaneous
  Country: US (occurrence: None)
  Receive Date: 20130204
  Receipt Date: 20130204
  Transmission Date: 20140127
  Serious: Yes (Hospitalization)
  Sender: FDA-Public Use
  Company Number: None

PATIENT
  Age: 65 Year
  Sex: Male
  Weight: 69.5 kg

DRUGS (1)
  1. SPIRONOLACTONE [Suspect]
     Route: 048
     Dates: start: 20100120, end: 20121011

REACTIONS (1)
  - Gynaecomastia [None]
